FAERS Safety Report 21234255 (Version 1)
Quarter: 2022Q3

REPORT INFORMATION
  Report Type: Spontaneous
  Country: None (occurrence: IR)
  Receive Date: 20220819
  Receipt Date: 20220819
  Transmission Date: 20221027
  Serious: Yes (Hospitalization)
  Sender: FDA-Public Use
  Company Number: IR-Nostrum Laboratories, Inc.-2132075

PATIENT
  Age: 5 Year
  Sex: Female

DRUGS (1)
  1. VALPROIC ACID [Suspect]
     Active Substance: VALPROIC ACID
     Indication: Seizure
     Route: 048

REACTIONS (5)
  - Henoch-Schonlein purpura [Recovered/Resolved]
  - Haematuria [Recovered/Resolved]
  - Seizure [Recovered/Resolved]
  - Dysentery [Recovered/Resolved]
  - Abdominal pain [Recovered/Resolved]
